FAERS Safety Report 11705566 (Version 1)
Quarter: 2015Q4

REPORT INFORMATION
  Report Type: Report from Study
  Country: US (occurrence: US)
  Receive Date: 20151106
  Receipt Date: 20151106
  Transmission Date: 20160304
  Serious: Yes (Other)
  Sender: FDA-Public Use
  Company Number: US-JNJFOC-20151104151

PATIENT
  Sex: Female

DRUGS (3)
  1. COREG [Concomitant]
     Active Substance: CARVEDILOL
  2. LOSARTAN. [Concomitant]
     Active Substance: LOSARTAN
  3. IMBRUVICA [Suspect]
     Active Substance: IBRUTINIB
     Indication: CHRONIC LYMPHOCYTIC LEUKAEMIA
     Route: 048
     Dates: start: 20140226

REACTIONS (3)
  - Speech disorder [Unknown]
  - Cerebrovascular accident [Unknown]
  - Confusional state [Unknown]
